FAERS Safety Report 10215143 (Version 1)
Quarter: 2014Q2

REPORT INFORMATION
  Report Type: Spontaneous
  Country: DK (occurrence: AU)
  Receive Date: 20140603
  Receipt Date: 20140603
  Transmission Date: 20141212
  Serious: Yes (Hospitalization)
  Sender: FDA-Public Use
  Company Number: AU-FRI-1000067829

PATIENT
  Age: 58 Year
  Sex: Female

DRUGS (1)
  1. LEXAPRO ORAL SOLUTION [Suspect]
     Indication: ANXIETY
     Dosage: 900 MG (90 ML) TWO DAYS
     Route: 048

REACTIONS (6)
  - Consciousness fluctuating [Unknown]
  - Respiratory rate decreased [Unknown]
  - Blood pressure decreased [Unknown]
  - Blood glucose decreased [Unknown]
  - Blood potassium decreased [Unknown]
  - Overdose [Unknown]
